FAERS Safety Report 15033693 (Version 1)
Quarter: 2018Q2

REPORT INFORMATION
  Report Type: Spontaneous
  Country: EG (occurrence: EG)
  Receive Date: 20180619
  Receipt Date: 20180619
  Transmission Date: 20180711
  Serious: Yes (Hospitalization)
  Sender: FDA-Public Use
  Company Number: EG-BAUSCH-BL-2018-016847

PATIENT
  Age: 4 Year
  Sex: Male
  Weight: 20 kg

DRUGS (1)
  1. CYCLOPENTOLATE. [Suspect]
     Active Substance: CYCLOPENTOLATE
     Indication: OPHTHALMOLOGICAL EXAMINATION
     Dosage: DOSE: 1-2 DROPS 4-5 TIMES DAILY FOR 3 DAYS
     Route: 047

REACTIONS (11)
  - Mental status changes [Unknown]
  - Hypertension [Unknown]
  - Dyskinesia [Unknown]
  - Hallucination [Unknown]
  - Flushing [Unknown]
  - Toxicity to various agents [Unknown]
  - Pyrexia [Unknown]
  - Dry skin [Unknown]
  - Tachycardia [Unknown]
  - Vomiting [Unknown]
  - Prescribed overdose [Unknown]
